FAERS Safety Report 7004387-5 (Version None)
Quarter: 2010Q3

REPORT INFORMATION
  Report Type: 
  Country: None (occurrence: None)
  Receive Date: 20100921
  Receipt Date: 20100909
  Transmission Date: 20110219
  Serious: No
  Sender: FDA-Public Use
  Company Number: US-BIOGENIDEC-2010BI031864

PATIENT
  Sex: Female

DRUGS (2)
  1. TYSABRI [Suspect]
     Indication: MULTIPLE SCLEROSIS
     Route: 042
     Dates: start: 20070101
  2. AVONEX [Concomitant]
     Indication: MULTIPLE SCLEROSIS
     Route: 030
     Dates: start: 20030801, end: 20080718

REACTIONS (7)
  - BALANCE DISORDER [None]
  - FALLOPIAN TUBE NEOPLASM [None]
  - GOUT [None]
  - MOOD ALTERED [None]
  - POOR VENOUS ACCESS [None]
  - VAGINAL HAEMORRHAGE [None]
  - WEIGHT DECREASED [None]
